FAERS Safety Report 5229087-3 (Version None)
Quarter: 2007Q1

REPORT INFORMATION
  Report Type: 
  Country: None (occurrence: None)
  Receive Date: 20061201
  Receipt Date: 20060809
  Transmission Date: 20070707
  Serious: No
  Sender: FDA-Public Use
  Company Number: US200608003292

PATIENT
  Age: 85 Year
  Sex: Female

DRUGS (4)
  1. CYMBALTA [Suspect]
     Dosage: SEE IMAGE
     Dates: start: 20060701
  2. CYMBALTA [Suspect]
     Dosage: SEE IMAGE
     Dates: start: 20060801
  3. CLONAPIN (CLONAZEPAM) [Concomitant]
  4. ACTONEL /USA/ (RISEDRONATE SODIUM) [Concomitant]

REACTIONS (1)
  - PARANOIA [None]
